FAERS Safety Report 14031071 (Version 1)
Quarter: 2017Q4

REPORT INFORMATION
  Report Type: Spontaneous
  Country: JP (occurrence: JP)
  Receive Date: 20171002
  Receipt Date: 20171002
  Transmission Date: 20180321
  Serious: Yes (Hospitalization, Other)
  Sender: FDA-Public Use
  Company Number: JP-TEVA-2017-JP-003252J

PATIENT
  Age: 66 Year
  Sex: Female
  Weight: 30 kg

DRUGS (5)
  1. E KEPPRA [Concomitant]
     Active Substance: LEVETIRACETAM
     Route: 065
  2. ELIQUIS [Concomitant]
     Active Substance: APIXABAN
     Route: 065
  3. LEVOFLOXACIN TABLET 500MG ^TEVA^ [Suspect]
     Active Substance: LEVOFLOXACIN
     Indication: PROPHYLAXIS URINARY TRACT INFECTION
     Dosage: 500 MILLIGRAM DAILY;
     Route: 048
     Dates: start: 20170511, end: 20170515
  4. CYMBALTA [Concomitant]
     Active Substance: DULOXETINE HYDROCHLORIDE
     Route: 065
  5. COSPANON [Concomitant]
     Active Substance: FLOPROPIONE
     Route: 065

REACTIONS (10)
  - Loss of consciousness [Unknown]
  - Tremor [Unknown]
  - Malaise [Unknown]
  - Asthenia [Unknown]
  - Dysphonia [Unknown]
  - Epilepsy [Recovering/Resolving]
  - Unresponsive to stimuli [Unknown]
  - Mydriasis [Unknown]
  - Restlessness [Unknown]
  - Grip strength decreased [Unknown]

NARRATIVE: CASE EVENT DATE: 20170512
